FAERS Safety Report 12500558 (Version 1)
Quarter: 2016Q2

REPORT INFORMATION
  Report Type: Spontaneous
  Country: US (occurrence: US)
  Receive Date: 20160627
  Receipt Date: 20160627
  Transmission Date: 20160815
  Serious: No
  Sender: FDA-Public Use
  Company Number: US-009507513-1606USA010876

PATIENT
  Age: 81 Year
  Sex: Female
  Weight: 54.42 kg

DRUGS (4)
  1. VITAMINS (UNSPECIFIED) [Concomitant]
     Active Substance: VITAMINS
  2. NATURE-THROID [Concomitant]
     Active Substance: THYROID, PORCINE
     Dosage: 65 MG, UNK
  3. BELSOMRA [Suspect]
     Active Substance: SUVOREXANT
     Indication: SLEEP DISORDER
     Dosage: 10 MG, QD
     Route: 048
     Dates: start: 201603, end: 201603
  4. MINERALS (UNSPECIFIED) [Concomitant]

REACTIONS (1)
  - Drug ineffective [Unknown]

NARRATIVE: CASE EVENT DATE: 201603
